FAERS Safety Report 5702967-8 (Version None)
Quarter: 2008Q2

REPORT INFORMATION
  Report Type: 
  Country: None (occurrence: None)
  Receive Date: 20080408
  Receipt Date: 20080327
  Transmission Date: 20081010
  Serious: Yes (Other)
  Sender: FDA-Public Use
  Company Number: 232953J08USA

PATIENT
  Age: 43 Year
  Sex: Female

DRUGS (4)
  1. REBIF [Suspect]
     Indication: MULTIPLE SCLEROSIS
     Dosage: 44 MCG, 3 IN 1 WEEKS, SUBCUTANEOUS
     Route: 058
     Dates: start: 20040506
  2. TOPAMAX [Suspect]
     Indication: MIGRAINE
     Dates: end: 20080101
  3. ALEVE (CAPLET) [Suspect]
     Indication: ARTHRITIS
     Dates: end: 20080101
  4. IMMUNOGLOBULIN (IMMUNOGLOBULIN HUMAN NORMAL) [Concomitant]

REACTIONS (2)
  - MIGRAINE [None]
  - RENAL IMPAIRMENT [None]
